FAERS Safety Report 4595318-6 (Version None)
Quarter: 2005Q1

REPORT INFORMATION
  Report Type: 
  Country: None (occurrence: None)
  Receive Date: 20050223
  Receipt Date: 20050207
  Transmission Date: 20050727
  Serious: Yes (Hospitalization)
  Sender: FDA-Public Use
  Company Number: 2005PL000008

PATIENT
  Age: 63 Year
  Sex: Female

DRUGS (3)
  1. AZATHIOPRINE [Suspect]
     Indication: SCLERODERMA
     Dosage: 100 MG, DAILY, ORAL
     Route: 048
  2. CEFDINIR [Concomitant]
  3. AMBROXOL HYDROCHLORIDE [Concomitant]

REACTIONS (13)
  - ALANINE AMINOTRANSFERASE INCREASED [None]
  - ASPARTATE AMINOTRANSFERASE INCREASED [None]
  - BLOOD CREATINE PHOSPHOKINASE INCREASED [None]
  - BLOOD IMMUNOGLOBULIN M [None]
  - BLOOD LACTATE DEHYDROGENASE INCREASED [None]
  - CYTOMEGALOVIRUS INFECTION [None]
  - FATIGUE [None]
  - MONOCYTE PERCENTAGE DECREASED [None]
  - MUSCLE DISORDER [None]
  - NECROSIS [None]
  - NEUTROPHIL PERCENTAGE INCREASED [None]
  - PYREXIA [None]
  - STEVENS-JOHNSON SYNDROME [None]
